FAERS Safety Report 11781652 (Version 2)
Quarter: 2015Q4

REPORT INFORMATION
  Report Type: Report from Study
  Country: CO (occurrence: CO)
  Receive Date: 20151126
  Receipt Date: 20151218
  Transmission Date: 20160305
  Serious: Yes (Hospitalization, Other)
  Sender: FDA-Public Use
  Company Number: CO-ABBVIE-15K-036-1508103-00

PATIENT
  Age: 64 Year
  Sex: Male
  Weight: 75 kg

DRUGS (2)
  1. HUMIRA [Suspect]
     Active Substance: ADALIMUMAB
     Indication: PSORIASIS
     Route: 058
     Dates: start: 20140709, end: 20151120
  2. LOSARTAN. [Concomitant]
     Active Substance: LOSARTAN
     Indication: PRODUCT USED FOR UNKNOWN INDICATION

REACTIONS (9)
  - Atrial fibrillation [Recovering/Resolving]
  - Hyperhidrosis [Recovered/Resolved]
  - Pericarditis tuberculous [Recovering/Resolving]
  - Malaise [Recovered/Resolved]
  - Syncope [Recovered/Resolved]
  - Non-Hodgkin^s lymphoma [Recovering/Resolving]
  - Extrapulmonary tuberculosis [Recovering/Resolving]
  - Cough [Recovered/Resolved]
  - Pyrexia [Recovered/Resolved]

NARRATIVE: CASE EVENT DATE: 2015
